FAERS Safety Report 4851964-3 (Version None)
Quarter: 2005Q4

REPORT INFORMATION
  Report Type: 
  Country: None (occurrence: None)
  Receive Date: 20051213
  Receipt Date: 20051122
  Transmission Date: 20060501
  Serious: Yes (Death)
  Sender: FDA-Public Use
  Company Number: TR-BRISTOL-MYERS SQUIBB COMPANY-13193842

PATIENT
  Age: 36 Year
  Sex: Female

DRUGS (5)
  1. IFOSFAMIDE [Suspect]
     Indication: ADULT T-CELL LYMPHOMA/LEUKAEMIA REFRACTORY
     Route: 042
  2. ETOPOSIDE [Suspect]
     Indication: ADULT T-CELL LYMPHOMA/LEUKAEMIA REFRACTORY
     Route: 042
  3. MESNA [Suspect]
     Indication: ADULT T-CELL LYMPHOMA/LEUKAEMIA REFRACTORY
     Route: 042
  4. METHOTREXATE [Suspect]
     Indication: ADULT T-CELL LYMPHOMA/LEUKAEMIA REFRACTORY
     Route: 037
  5. IDARUBICIN HCL [Suspect]
     Indication: ADULT T-CELL LYMPHOMA/LEUKAEMIA REFRACTORY
     Route: 042

REACTIONS (1)
  - LEUKOENCEPHALOPATHY [None]
